FAERS Safety Report 17539442 (Version 4)
Quarter: 2020Q2

REPORT INFORMATION
  Report Type: Spontaneous
  Country: US (occurrence: US)
  Receive Date: 20200313
  Receipt Date: 20200603
  Transmission Date: 20200713
  Serious: No
  Sender: FDA-Public Use
  Company Number: US-PFIZER INC-2020108605

PATIENT
  Age: 62 Year
  Sex: Male
  Weight: 215.42 kg

DRUGS (3)
  1. FLECTOR [Suspect]
     Active Substance: DICLOFENAC EPOLAMINE
     Indication: INFLAMMATION
  2. FLECTOR [Suspect]
     Active Substance: DICLOFENAC EPOLAMINE
     Indication: MUSCLE DISORDER
  3. FLECTOR [Suspect]
     Active Substance: DICLOFENAC EPOLAMINE
     Indication: PAIN
     Dosage: 1 DF, DAILY (APPLY 1 PATCH EVERY DAY TO MOST PAINFUL AREA)
     Route: 062

REACTIONS (3)
  - Upper respiratory tract infection [Unknown]
  - Poor quality product administered [Unknown]
  - Product adhesion issue [Unknown]
